FAERS Safety Report 15897185 (Version 2)
Quarter: 2019Q1

REPORT INFORMATION
  Report Type: Spontaneous
  Country: US (occurrence: US)
  Receive Date: 20190131
  Receipt Date: 20190304
  Transmission Date: 20190417
  Serious: Yes (Hospitalization)
  Sender: FDA-Public Use
  Company Number: US-GLAXOSMITHKLINE-US2019GSK017029

PATIENT
  Sex: Female

DRUGS (1)
  1. BREO ELLIPTA [Suspect]
     Active Substance: FLUTICASONE FUROATE\VILANTEROL TRIFENATATE
     Dosage: UNK
     Route: 055
     Dates: start: 2017

REACTIONS (6)
  - Influenza like illness [Not Recovered/Not Resolved]
  - Dyspnoea [Unknown]
  - Respiratory syncytial virus infection [Unknown]
  - Chronic obstructive pulmonary disease [Unknown]
  - Malaise [Not Recovered/Not Resolved]
  - Asthma [Unknown]
